FAERS Safety Report 11153102 (Version 1)
Quarter: 2015Q2

REPORT INFORMATION
  Report Type: Report from Study
  Country: US (occurrence: US)
  Receive Date: 20150601
  Receipt Date: 20150601
  Transmission Date: 20150821
  Serious: Yes (Death, Other)
  Sender: FDA-Public Use
  Company Number: US-GILEAD-2015-0150942

PATIENT
  Age: 68 Year
  Sex: Female

DRUGS (2)
  1. IDELALISIB [Suspect]
     Active Substance: IDELALISIB
     Indication: CHRONIC LYMPHOCYTIC LEUKAEMIA
     Dosage: 150 MG, BID
     Route: 048
     Dates: start: 20141202
  2. ARZERRA [Concomitant]
     Active Substance: OFATUMUMAB
     Indication: CHRONIC LYMPHOCYTIC LEUKAEMIA

REACTIONS (7)
  - Lymphadenopathy [Unknown]
  - Vomiting [Unknown]
  - Disease progression [Fatal]
  - Multi-organ disorder [Unknown]
  - Upper respiratory tract infection [Unknown]
  - Cough [Unknown]
  - Diarrhoea [Unknown]
